FAERS Safety Report 7954613-0 (Version None)
Quarter: 2011Q4

REPORT INFORMATION
  Report Type: 
  Country: None (occurrence: None)
  Receive Date: 20111202
  Receipt Date: 20111125
  Transmission Date: 20120403
  Serious: Yes (Hospitalization, Other)
  Sender: FDA-Public Use
  Company Number: PHHY2010VE76308

PATIENT
  Sex: Female

DRUGS (6)
  1. PENTOXIFYLLINE [Concomitant]
     Dosage: 2 TABLETS DAILY
  2. GLUCOSAMINE [Concomitant]
  3. MAGNESIUM SULFATE [Concomitant]
     Dosage: 500 MG, QD
  4. ZOLEDRONOC ACID [Suspect]
     Dosage: 5 MG, ONCE A YEAR
     Route: 042
     Dates: start: 20080319
  5. CALCIUM [Concomitant]
     Dosage: 1500 MG, QD
  6. ARAVA [Concomitant]
     Indication: RHEUMATOID ARTHRITIS
     Dosage: 20 MG, QD

REACTIONS (4)
  - PAIN [None]
  - BONE LOSS [None]
  - ARTHRALGIA [None]
  - FEMUR FRACTURE [None]
